FAERS Safety Report 13555081 (Version 2)
Quarter: 2017Q3

REPORT INFORMATION
  Report Type: Spontaneous
  Country: US (occurrence: US)
  Receive Date: 20170517
  Receipt Date: 20170803
  Transmission Date: 20171127
  Serious: Yes (Death)
  Sender: FDA-Public Use
  Company Number: US-BAYER-2017-087887

PATIENT
  Sex: Male

DRUGS (1)
  1. TRASYLOL [Suspect]
     Active Substance: APROTININ

REACTIONS (1)
  - Death [Fatal]
